FAERS Safety Report 17484672 (Version 2)
Quarter: 2020Q1

REPORT INFORMATION
  Report Type: Report from Study
  Country: FR (occurrence: FR)
  Receive Date: 20200302
  Receipt Date: 20200319
  Transmission Date: 20200409
  Serious: Yes (Hospitalization, Other)
  Sender: FDA-Public Use
  Company Number: NVSC2020FR056615

PATIENT
  Age: 84 Year
  Sex: Male
  Weight: 68.2 kg

DRUGS (1)
  1. ADOPORT [Suspect]
     Active Substance: TACROLIMUS
     Indication: RENAL TRANSPLANT
     Dosage: 5 MG, UNKNOWN
     Route: 048
     Dates: start: 20191025

REACTIONS (11)
  - Clostridium difficile colitis [Recovered/Resolved]
  - Haematuria [Recovered/Resolved]
  - Antineutrophil cytoplasmic antibody [Recovered/Resolved]
  - Bacteraemia [Recovered/Resolved]
  - Toxicity to various agents [Recovered/Resolved]
  - Pulmonary oedema [Recovered/Resolved]
  - Pyrexia [Recovered/Resolved]
  - Bacteriuria [Recovered/Resolved]
  - Urinary retention [Recovered/Resolved]
  - Pyelocaliectasis [Recovered/Resolved]
  - Leukopenia [Recovering/Resolving]

NARRATIVE: CASE EVENT DATE: 20191026
